FAERS Safety Report 6627912-2 (Version None)
Quarter: 2010Q1

REPORT INFORMATION
  Report Type: 
  Country: None (occurrence: None)
  Receive Date: 20100311
  Receipt Date: 20090313
  Transmission Date: 20100710
  Serious: No
  Sender: FDA-Public Use
  Company Number: A0773306A

PATIENT
  Age: 51 Year
  Sex: Female

DRUGS (2)
  1. NICOTINE POLACRILEX [Suspect]
     Indication: SMOKING CESSATION THERAPY
     Route: 002
     Dates: start: 20081219, end: 20090114
  2. NICOTINE [Suspect]
     Indication: SMOKING CESSATION THERAPY
     Dosage: 14MG PER DAY
     Route: 062
     Dates: start: 20081219, end: 20090114

REACTIONS (3)
  - ABDOMINAL PAIN UPPER [None]
  - GASTRIC DISORDER [None]
  - NICOTINE DEPENDENCE [None]
